FAERS Safety Report 8303929-7 (Version None)
Quarter: 2012Q2

REPORT INFORMATION
  Report Type: 
  Country: None (occurrence: None)
  Receive Date: 20120423
  Receipt Date: 20120418
  Transmission Date: 20120825
  Serious: Yes (Hospitalization)
  Sender: FDA-Public Use
  Company Number: PHHY2012AU033159

PATIENT

DRUGS (1)
  1. AREDIA [Suspect]

REACTIONS (1)
  - FEMUR FRACTURE [None]
